FAERS Safety Report 9391885 (Version 1)
Quarter: 2013Q3

REPORT INFORMATION
  Report Type: Spontaneous
  Country: US (occurrence: US)
  Receive Date: 20130709
  Receipt Date: 20130709
  Transmission Date: 20140515
  Serious: Yes (Hospitalization)
  Sender: FDA-Public Use
  Company Number: US-PERRIGO-13US006912

PATIENT
  Age: 18 Year
  Sex: Female

DRUGS (1)
  1. CETIRIZINE 10MG 4H2 [Suspect]
     Indication: RHINITIS ALLERGIC
     Dosage: 10 MG, QD
     Route: 048

REACTIONS (10)
  - Suicidal ideation [Recovered/Resolved]
  - Obsessive thoughts [Recovered/Resolved]
  - Delusion [Recovered/Resolved]
  - Paranoia [Recovered/Resolved]
  - Depression [Recovered/Resolved]
  - Anxiety [Recovered/Resolved]
  - Feelings of worthlessness [Recovered/Resolved]
  - Disturbance in attention [Unknown]
  - Decreased appetite [Unknown]
  - Insomnia [Unknown]
